FAERS Safety Report 20447625 (Version 1)
Quarter: 2022Q1

REPORT INFORMATION
  Report Type: Spontaneous
  Country: US (occurrence: US)
  Receive Date: 20220209
  Receipt Date: 20220209
  Transmission Date: 20220423
  Serious: No
  Sender: FDA-Public Use
  Company Number: US-ELI_LILLY_AND_COMPANY-US202201007766

PATIENT
  Sex: Male

DRUGS (5)
  1. BASAGLAR [Suspect]
     Active Substance: INSULIN GLARGINE
     Indication: Type 2 diabetes mellitus
     Dosage: 64 U, OTHER (SPLIT THE DOSE TO TWO TIMES))
     Route: 065
  2. BASAGLAR [Suspect]
     Active Substance: INSULIN GLARGINE
     Indication: Type 2 diabetes mellitus
     Dosage: 64 U, OTHER (SPLIT THE DOSE TO TWO TIMES))
     Route: 065
  3. BASAGLAR [Suspect]
     Active Substance: INSULIN GLARGINE
     Dosage: 70 U, OTHER (SPLIT THE DOSE TO TWO TIMES)
     Route: 065
  4. BASAGLAR [Suspect]
     Active Substance: INSULIN GLARGINE
     Dosage: 70 U, OTHER (SPLIT THE DOSE TO TWO TIMES)
     Route: 065
  5. FARXIGA [Concomitant]
     Active Substance: DAPAGLIFLOZIN PROPANEDIOL
     Indication: Product used for unknown indication
     Dosage: UNK UNK, UNKNOWN
     Route: 065

REACTIONS (5)
  - Glycosylated haemoglobin increased [Unknown]
  - Fat tissue increased [Unknown]
  - Injection site pain [Unknown]
  - Drug ineffective [Unknown]
  - Blood glucose increased [Recovered/Resolved]
